FAERS Safety Report 5915555-5 (Version None)
Quarter: 2008Q4

REPORT INFORMATION
  Report Type: 
  Country: None (occurrence: None)
  Receive Date: 20081010
  Receipt Date: 20080805
  Transmission Date: 20090506
  Serious: No
  Sender: FDA-Public Use
  Company Number: A0741133A

PATIENT
  Age: 81 Year
  Sex: Female

DRUGS (3)
  1. TYKERB [Suspect]
     Indication: BREAST CANCER
     Dosage: 250MG FIVE TIMES PER DAY
     Route: 048
     Dates: start: 20080719
  2. XELODA [Concomitant]
  3. THYROID MEDICATION [Concomitant]
     Route: 048

REACTIONS (9)
  - ABDOMINAL DISCOMFORT [None]
  - DIARRHOEA [None]
  - FLATULENCE [None]
  - GLOSSODYNIA [None]
  - HYPOAESTHESIA [None]
  - NAUSEA [None]
  - ORAL PAIN [None]
  - PARAESTHESIA [None]
  - RETCHING [None]
